FAERS Safety Report 13403258 (Version 1)
Quarter: 2017Q2

REPORT INFORMATION
  Report Type: Spontaneous
  Country: US (occurrence: US)
  Receive Date: 20170404
  Receipt Date: 20170404
  Transmission Date: 20170830
  Serious: Yes (Hospitalization)
  Sender: FDA-Public Use
  Company Number: None

PATIENT
  Age: 55 Year
  Sex: Female
  Weight: 101.2 kg

DRUGS (1)
  1. CABOZANTINIB [Suspect]
     Active Substance: CABOZANTINIB
     Indication: RENAL CELL CARCINOMA
     Route: 048
     Dates: start: 20170204, end: 20170317

REACTIONS (6)
  - Drug-induced liver injury [None]
  - Aspartate aminotransferase increased [None]
  - Alanine aminotransferase increased [None]
  - Abdominal pain upper [None]
  - Blood bilirubin increased [None]
  - Fatigue [None]

NARRATIVE: CASE EVENT DATE: 20170326
